FAERS Safety Report 20802408 (Version 1)
Quarter: 2022Q2

REPORT INFORMATION
  Report Type: Spontaneous
  Country: US (occurrence: None)
  Receive Date: 20220509
  Receipt Date: 20220509
  Transmission Date: 20220721
  Serious: Yes (Life-Threatening, Hospitalization)
  Sender: FDA-Public Use
  Company Number: None

PATIENT
  Age: 69 Year
  Sex: Male

DRUGS (1)
  1. MORPHINE SULFATE [Suspect]
     Active Substance: MORPHINE SULFATE
     Indication: Pain
     Dosage: 160 MG TID PO?
     Route: 048
     Dates: start: 20211104

REACTIONS (3)
  - Intentional overdose [None]
  - Sedation [None]
  - Suicidal ideation [None]

NARRATIVE: CASE EVENT DATE: 20220426
